FAERS Safety Report 18704225 (Version 1)
Quarter: 2021Q1

REPORT INFORMATION
  Report Type: Other
  Country: AR (occurrence: AR)
  Receive Date: 20210106
  Receipt Date: 20210106
  Transmission Date: 20210419
  Serious: Yes (Hospitalization)
  Sender: FDA-Public Use
  Company Number: AR-ROCHE-2743723

PATIENT
  Age: 13 Year
  Sex: Female

DRUGS (2)
  1. XOLAIR [Suspect]
     Active Substance: OMALIZUMAB
     Indication: ASTHMA
     Route: 058
     Dates: start: 20180415, end: 20190901
  2. XOLAIR [Suspect]
     Active Substance: OMALIZUMAB
     Dosage: (4 DOSE)
     Route: 058
     Dates: start: 20190118

REACTIONS (4)
  - Dyspnoea [Recovering/Resolving]
  - Agitation [Recovering/Resolving]
  - Asthmatic crisis [Recovering/Resolving]
  - Oxygen saturation decreased [Recovering/Resolving]

NARRATIVE: CASE EVENT DATE: 20190106
